FAERS Safety Report 25259314 (Version 1)
Quarter: 2025Q2

REPORT INFORMATION
  Report Type: Spontaneous
  Country: GB (occurrence: GB)
  Receive Date: 20250501
  Receipt Date: 20250501
  Transmission Date: 20250716
  Serious: Yes (Other)
  Sender: ALEXION PHARMACEUTICALS
  Company Number: GB-ASTRAZENECA-202504GLO027469GB

PATIENT
  Age: 50 Year

DRUGS (22)
  1. OMEPRAZOLE [Suspect]
     Active Substance: OMEPRAZOLE
     Indication: Product used for unknown indication
     Dosage: 1 DOSAGE FORM, QD
  2. LAMOTRIGINE [Suspect]
     Active Substance: LAMOTRIGINE
     Indication: Product used for unknown indication
     Dosage: 1 DOSAGE FORM, QD
  3. MELATONIN [Concomitant]
     Active Substance: MELATONIN
     Route: 065
  4. CODEINE [Concomitant]
     Active Substance: CODEINE
     Route: 065
  5. THIAMINE [Concomitant]
     Active Substance: THIAMINE
     Route: 065
  6. PAROXETINE [Concomitant]
     Active Substance: PAROXETINE
     Dosage: 1 DOSAGE FORM, QD
     Route: 065
  7. FAMOTIDINE [Concomitant]
     Active Substance: FAMOTIDINE
     Route: 065
  8. DOCUSATE [Concomitant]
     Active Substance: DOCUSATE
     Route: 065
  9. BACLOFEN [Concomitant]
     Active Substance: BACLOFEN
     Route: 065
  10. CYCLIZINE [Concomitant]
     Active Substance: CYCLIZINE
     Route: 065
  11. TAMSULOSIN [Concomitant]
     Active Substance: TAMSULOSIN
     Dosage: 1 DOSAGE FORM, QD
     Route: 065
  12. ACETAMINOPHEN [Concomitant]
     Active Substance: ACETAMINOPHEN
  13. SODIUM ALGINATE [Concomitant]
     Active Substance: SODIUM ALGINATE
  14. POTASSIUM BICARBONATE [Concomitant]
     Active Substance: POTASSIUM BICARBONATE
  15. FOLIC ACID [Concomitant]
     Active Substance: FOLIC ACID
  16. FORMOTEROL FUMARATE DIHYDRATE [Concomitant]
     Active Substance: FORMOTEROL FUMARATE DIHYDRATE
  17. BECLOMETHASONE DIPROPIONATE [Concomitant]
     Active Substance: BECLOMETHASONE DIPROPIONATE
  18. VITAMIN D3 [Concomitant]
     Active Substance: CHOLECALCIFEROL
  19. CALCIUM CARBONATE [Concomitant]
     Active Substance: CALCIUM CARBONATE
  20. PEPPERMINT OIL [Concomitant]
     Active Substance: PEPPERMINT OIL
  21. PROMETHAZINE HYDROCHLORIDE [Concomitant]
     Active Substance: PROMETHAZINE HYDROCHLORIDE
  22. SENNA [Concomitant]
     Active Substance: SENNOSIDES

REACTIONS (1)
  - Inappropriate antidiuretic hormone secretion [Unknown]
